FAERS Safety Report 9341703 (Version 10)
Quarter: 2014Q2

REPORT INFORMATION
  Report Type: Report from Study
  Country: CA (occurrence: CA)
  Receive Date: 20130611
  Receipt Date: 20140401
  Transmission Date: 20141212
  Serious: Yes (Hospitalization, Other)
  Sender: FDA-Public Use
  Company Number: CA-ROCHE-1231716

PATIENT
  Sex: Male
  Weight: 87.1 kg

DRUGS (9)
  1. RITUXAN [Suspect]
     Indication: RHEUMATOID ARTHRITIS
     Route: 042
     Dates: start: 20100325
  2. RITUXAN [Suspect]
     Dosage: MOST RECENT DOSE WAS ON 18/SEP/2012
     Route: 042
     Dates: start: 20101124
  3. DIPHENHYDRAMINE HCL [Concomitant]
     Indication: PREMEDICATION
     Route: 048
     Dates: start: 20100325
  4. METHYLPREDNISOLONE [Concomitant]
     Indication: PREMEDICATION
     Route: 042
     Dates: start: 20100325
  5. METHYLPREDNISOLONE [Concomitant]
     Route: 042
     Dates: start: 20120918
  6. ACETYLSALICYLIC ACID [Concomitant]
     Route: 065
  7. TYLENOL ARTHRITIS [Concomitant]
     Route: 065
  8. TYLENOL ARTHRITIS [Concomitant]
     Route: 048
     Dates: start: 20100325
  9. ACETAMINOPHEN [Concomitant]
     Indication: PREMEDICATION
     Route: 048
     Dates: start: 20100325

REACTIONS (13)
  - Pneumonia [Not Recovered/Not Resolved]
  - Pulmonary fibrosis [Not Recovered/Not Resolved]
  - Pneumothorax [Unknown]
  - Herpes zoster [Recovered/Resolved]
  - Cataract [Not Recovered/Not Resolved]
  - Hepatic enzyme increased [Not Recovered/Not Resolved]
  - Weight increased [Not Recovered/Not Resolved]
  - Cough [Not Recovered/Not Resolved]
  - Respiratory tract congestion [Not Recovered/Not Resolved]
  - Influenza [Not Recovered/Not Resolved]
  - Dental caries [Not Recovered/Not Resolved]
  - Red blood cell sedimentation rate increased [Not Recovered/Not Resolved]
  - Rheumatoid arthritis [Recovered/Resolved]
